FAERS Safety Report 17235888 (Version 1)
Quarter: 2020Q1

REPORT INFORMATION
  Report Type: Spontaneous
  Country: US (occurrence: US)
  Receive Date: 20200106
  Receipt Date: 20200106
  Transmission Date: 20200409
  Serious: No
  Sender: FDA-Public Use
  Company Number: US-JNJFOC-20191239554

PATIENT
  Sex: Female
  Weight: 75.36 kg

DRUGS (1)
  1. TYLENOL [Suspect]
     Active Substance: ACETAMINOPHEN
     Indication: BACK PAIN
     Dosage: 4 TABLETS PER DAY AND TWICE A DAY
     Route: 048

REACTIONS (1)
  - Dyspepsia [Not Recovered/Not Resolved]
